FAERS Safety Report 9005586 (Version 1)
Quarter: 2013Q1

REPORT INFORMATION
  Report Type: Report from Study
  Country: US (occurrence: US)
  Receive Date: 20130109
  Receipt Date: 20130109
  Transmission Date: 20140127
  Serious: Yes (Hospitalization)
  Sender: FDA-Public Use
  Company Number: US-AMGEN-USACT2012082289

PATIENT
  Age: 9 Year
  Sex: Female

DRUGS (26)
  1. PLACEBO [Suspect]
     Indication: HYPERPARATHYROIDISM SECONDARY
     Dosage: 5 MG, UNK
     Dates: start: 20120926
  2. EPOGEN [Suspect]
     Indication: ANAEMIA
     Dosage: UNK UNK, 3 TIMES/WK
     Route: 042
     Dates: start: 20120919
  3. PREDNISONE [Concomitant]
     Indication: IMMUNOSUPPRESSION
     Dosage: 2 MG/DL, QD
     Route: 048
     Dates: start: 20120223
  4. FERRLECIT [Concomitant]
     Indication: ANAEMIA
     Dosage: 125 MG, PRN
     Route: 042
     Dates: start: 20120515
  5. ENALAPRIL [Concomitant]
     Indication: HYPERTENSION
     Dosage: 15 MG, QD
     Route: 048
     Dates: start: 20120914
  6. SODIUM BICARBONATE [Concomitant]
     Indication: ACIDOSIS
     Dosage: 1300 MG, 4 TIMES/WK
     Route: 048
     Dates: start: 20120917
  7. CLONIDINE [Concomitant]
     Indication: HYPERTENSION
     Dosage: 0.2 MG, TID
     Dates: start: 20120917
  8. ALBUMIN [Concomitant]
     Indication: HYPOALBUMINAEMIA
     Dosage: 160 ML, 3 TIMES/WK
     Route: 042
     Dates: start: 20120619
  9. NORVASC [Concomitant]
     Indication: HYPERTENSION
     Dosage: 10 MG, QD
     Route: 048
     Dates: start: 20101207
  10. NIFEDIPINE [Concomitant]
     Indication: HYPERTENSION
     Dosage: 10 MG, UNK
     Route: 060
     Dates: start: 20120813, end: 20121112
  11. LOVENOX [Concomitant]
     Indication: ANTICOAGULANT THERAPY
     Dosage: 15 MG, QD
     Route: 058
     Dates: start: 20120604
  12. LEVOTHROID [Concomitant]
     Indication: HYPOTHYROIDISM
     Dosage: 50 MUG, QD
     Route: 048
     Dates: start: 20070323
  13. TYLENOL [Concomitant]
     Indication: HEADACHE
     Dosage: 250 MG, PRN
     Route: 048
     Dates: start: 20120921
  14. TYLENOL [Concomitant]
     Indication: PYREXIA
  15. MINOXIDIL [Concomitant]
     Indication: HYPERTENSION
     Dosage: 2.5 MG, QD
     Route: 048
     Dates: start: 20120901
  16. ZANTAC [Concomitant]
     Indication: GASTROOESOPHAGEAL REFLUX DISEASE
     Dosage: 75 MG, BID
     Route: 048
     Dates: start: 20120223
  17. CRESTOR [Concomitant]
     Indication: HYPERLIPIDAEMIA
     Dosage: 20 MG, QD
     Route: 048
     Dates: start: 20091230
  18. HYDRALAZINE [Concomitant]
     Indication: HYPERTENSION
     Dosage: 10 MG, UNK
     Route: 042
     Dates: start: 20120930, end: 20121217
  19. NIPRIDE [Concomitant]
     Indication: HYPERTENSION
     Dosage: UNK UNK, QD
     Route: 042
     Dates: start: 20120929, end: 20121219
  20. VANCOMYCIN [Concomitant]
     Indication: ANTIBIOTIC THERAPY
     Dosage: 350 MG, UNK
     Route: 042
     Dates: start: 20121002, end: 20121123
  21. BENADRYL [Concomitant]
     Dosage: 25 MG, UNK
     Route: 042
     Dates: start: 20121031
  22. GENTAMICIN [Concomitant]
     Dosage: 60 MG, UNK
     Route: 042
     Dates: start: 20121114, end: 20121114
  23. CALCIJEX [Concomitant]
     Indication: HYPERPARATHYROIDISM
     Dosage: 1 MUG, 3 TIMES/WK
     Route: 042
     Dates: start: 20120821
  24. RENVELA [Concomitant]
     Indication: HYPERPHOSPHATAEMIA
     Dosage: 1600 MG, QD
     Route: 048
     Dates: start: 20120717
  25. NUTROPIN [Concomitant]
     Indication: GROWTH RETARDATION
     Dosage: 1.2 MG, QD
     Route: 058
     Dates: start: 20120726
  26. VITAMIN D2 [Concomitant]
     Indication: HYPOVITAMINOSIS
     Dosage: 50000 IU, Q2WK
     Dates: start: 20121010

REACTIONS (1)
  - Hypertensive encephalopathy [Recovered/Resolved]
